FAERS Safety Report 4932269-9 (Version None)
Quarter: 2006Q1

REPORT INFORMATION
  Report Type: 
  Country: None (occurrence: None)
  Receive Date: 20060228
  Receipt Date: 20060227
  Transmission Date: 20060701
  Serious: Yes (Other)
  Sender: FDA-Public Use
  Company Number: 2006BH001390

PATIENT
  Sex: Female

DRUGS (3)
  1. VINORELBINE TARTRATE [Suspect]
     Indication: BREAST CANCER METASTATIC
     Dosage: 15 MG/M**2/IV
     Route: 042
  2. DOCETAXEL (DOCETAXEL) [Suspect]
     Indication: BREAST CANCER METASTATIC
     Dosage: 25 MG/M**2;IV
     Route: 042
  3. METHYLPREDNISOLONE [Concomitant]

REACTIONS (1)
  - NEUTROPENIA [None]
